FAERS Safety Report 6596202-9 (Version None)
Quarter: 2010Q1

REPORT INFORMATION
  Report Type: 
  Country: None (occurrence: None)
  Receive Date: 20100223
  Receipt Date: 20100209
  Transmission Date: 20100710
  Serious: Yes (Death, Life-Threatening, Hospitalization)
  Sender: FDA-Public Use
  Company Number: CA-ROCHE-682558

PATIENT
  Sex: Male

DRUGS (9)
  1. PEG-INTERFERON ALFA 2A (RO 25-8310) [Suspect]
     Indication: HEPATITIS C
     Route: 058
     Dates: start: 20070919, end: 20080702
  2. RIBAVIRIN [Suspect]
     Indication: HEPATITIS C
     Route: 048
     Dates: start: 20070919, end: 20080702
  3. ELAVIL [Concomitant]
     Indication: INSOMNIA
     Route: 048
  4. RIVOTRIL [Concomitant]
     Indication: INSOMNIA
     Route: 048
  5. METHADONE [Concomitant]
     Indication: SUBSTANCE ABUSE
     Dosage: DRUG: METHODONE
     Route: 048
     Dates: start: 20050901, end: 20090201
  6. SEROQUEL [Concomitant]
     Dosage: INDICATION: MOOD
     Route: 048
     Dates: start: 20050901
  7. CELEXA [Concomitant]
     Dosage: INDICATION: MOOD
     Route: 048
     Dates: start: 20050901
  8. HYDROCHLOROTHIAZIDE [Concomitant]
     Route: 048
     Dates: start: 20050901
  9. ASPIRIN [Concomitant]
     Dosage: DRUG: ENTERIC COATED ASA
     Route: 048
     Dates: start: 20050901

REACTIONS (3)
  - DEATH [None]
  - LUNG NEOPLASM MALIGNANT [None]
  - MYOCARDIAL INFARCTION [None]
